FAERS Safety Report 6336331-8 (Version None)
Quarter: 2009Q3

REPORT INFORMATION
  Report Type: 
  Country: None (occurrence: None)
  Receive Date: 20090901
  Receipt Date: 20090824
  Transmission Date: 20100115
  Serious: Yes (Hospitalization)
  Sender: FDA-Public Use
  Company Number: US-AMGEN-QUU355977

PATIENT
  Sex: Female

DRUGS (9)
  1. ENBREL [Suspect]
     Indication: RHEUMATOID ARTHRITIS
     Route: 058
     Dates: start: 20070222, end: 20081223
  2. SULFASALAZINE [Concomitant]
     Route: 048
  3. DIOVAN HCT [Concomitant]
  4. NORVASC [Concomitant]
  5. PREVACID [Concomitant]
  6. TRAMADOL HCL [Concomitant]
  7. PAMELOR [Concomitant]
  8. MOBIC [Concomitant]
  9. UNSPECIFIED STEROIDS [Concomitant]

REACTIONS (4)
  - CHOLECYSTITIS INFECTIVE [None]
  - ENTEROCOCCAL INFECTION [None]
  - LIVER ABSCESS [None]
  - RHEUMATOID ARTHRITIS [None]
